FAERS Safety Report 25144405 (Version 1)
Quarter: 2025Q2

REPORT INFORMATION
  Report Type: Spontaneous
  Country: IT (occurrence: IT)
  Receive Date: 20250401
  Receipt Date: 20250401
  Transmission Date: 20250716
  Serious: Yes (Other)
  Sender: AMGEN
  Company Number: IT-AMGEN-ITASP2025059647

PATIENT
  Age: 61 Year
  Sex: Female

DRUGS (8)
  1. ADALIMUMAB [Suspect]
     Active Substance: ADALIMUMAB
     Indication: Colitis ulcerative
     Dosage: 40 MILLIGRAM, Q2WK
     Route: 065
     Dates: start: 2021, end: 2023
  2. BECLOMETHASONE\FORMOTEROL [Concomitant]
     Active Substance: BECLOMETHASONE\FORMOTEROL
     Dosage: 200 MICROGRAM PER 6 MICROGRAM
     Route: 065
  3. TIOTROPIUM [Concomitant]
     Active Substance: TIOTROPIUM
     Dosage: UNK UNK, QD
  4. MESALAMINE [Concomitant]
     Active Substance: MESALAMINE
  5. AMLODIPINE [Concomitant]
     Active Substance: AMLODIPINE BESYLATE
  6. ASPIRIN [Concomitant]
     Active Substance: ASPIRIN
     Dosage: UNK UNK, QD
  7. INSULIN NOS [Concomitant]
     Active Substance: INSULIN NOS
  8. CETIRIZINE [Concomitant]
     Active Substance: CETIRIZINE HYDROCHLORIDE
     Route: 065

REACTIONS (4)
  - Aspergillus infection [Recovered/Resolved]
  - Colitis ulcerative [Recovering/Resolving]
  - Asthma [Recovering/Resolving]
  - Chronic rhinosinusitis with nasal polyps [Recovering/Resolving]

NARRATIVE: CASE EVENT DATE: 20230101
